FAERS Safety Report 8177398-4 (Version None)
Quarter: 2012Q1

REPORT INFORMATION
  Report Type: 
  Country: None (occurrence: None)
  Receive Date: 20120301
  Receipt Date: 20120227
  Transmission Date: 20120608
  Serious: Yes (Hospitalization, Other)
  Sender: FDA-Public Use
  Company Number: BE-BAYER-2012-018222

PATIENT
  Sex: Male

DRUGS (4)
  1. UNKNOWN DRUG [Concomitant]
     Dosage: UNK
     Dates: start: 20120215, end: 20120217
  2. ZYVOX [Concomitant]
  3. AVELOX [Suspect]
     Indication: PNEUMONIA PNEUMOCOCCAL
     Dosage: UNK
     Dates: start: 20120210, end: 20120214
  4. AVELOX [Suspect]
     Dosage: UNK
     Dates: start: 20120217, end: 20120223

REACTIONS (3)
  - HEPATIC FUNCTION ABNORMAL [None]
  - EMPYEMA [None]
  - LIVER FUNCTION TEST ABNORMAL [None]
